FAERS Safety Report 16373189 (Version 1)
Quarter: 2019Q2

REPORT INFORMATION
  Report Type: Spontaneous
  Country: JP (occurrence: JP)
  Receive Date: 20190530
  Receipt Date: 20190530
  Transmission Date: 20190711
  Serious: Yes (Other)
  Sender: FDA-Public Use
  Company Number: JP-PFIZER INC-2019225960

PATIENT
  Age: 83 Year
  Sex: Female

DRUGS (3)
  1. INLYTA [Suspect]
     Active Substance: AXITINIB
     Dosage: 5 MG, UNK
  2. INLYTA [Suspect]
     Active Substance: AXITINIB
     Dosage: 3 MG, UNK
  3. INLYTA [Suspect]
     Active Substance: AXITINIB
     Dosage: 2 MG, UNK

REACTIONS (3)
  - Cholangitis [Unknown]
  - Hypertension [Unknown]
  - Fatigue [Unknown]
